FAERS Safety Report 9170581 (Version 5)
Quarter: 2014Q1

REPORT INFORMATION
  Report Type: Spontaneous
  Country: GB (occurrence: GB)
  Receive Date: 20130319
  Receipt Date: 20140203
  Transmission Date: 20141002
  Serious: Yes (Hospitalization)
  Sender: FDA-Public Use
  Company Number: GB-NOVOPROD-373194

PATIENT
  Age: 69 Year
  Sex: Male
  Weight: 83 kg

DRUGS (15)
  1. LEVEMIR FLEXPEN [Suspect]
     Indication: TYPE 2 DIABETES MELLITUS
     Dosage: 46 U, QD
     Route: 065
     Dates: start: 20110204, end: 201308
  2. LEVEMIR FLEXPEN [Suspect]
     Indication: DIABETES MELLITUS INADEQUATE CONTROL
  3. NOVORAPID FLEXPEN [Suspect]
     Indication: TYPE 2 DIABETES MELLITUS
     Dosage: 7 U, TID
     Route: 065
     Dates: start: 20110204, end: 201308
  4. NOVORAPID FLEXPEN [Suspect]
     Indication: DIABETES MELLITUS INADEQUATE CONTROL
  5. NOVOMIX 30 [Suspect]
     Indication: TYPE 2 DIABETES MELLITUS
     Dosage: UNK
     Dates: start: 20090318, end: 201102
  6. NOVOMIX 30 [Suspect]
     Dosage: UNK
     Dates: start: 201308
  7. ASPIRIN [Concomitant]
     Indication: PRODUCT USED FOR UNKNOWN INDICATION
     Dosage: 75 MG, QD
  8. CYANOCOBALAMIN (57 CO) [Concomitant]
     Indication: PRODUCT USED FOR UNKNOWN INDICATION
     Dosage: 100 DF, BID
  9. GABAPENTIN [Concomitant]
     Indication: PRODUCT USED FOR UNKNOWN INDICATION
     Dosage: 100 DF, ON
  10. LANSOPRAZOLE [Concomitant]
     Indication: PRODUCT USED FOR UNKNOWN INDICATION
     Dosage: 15 DF, QD
     Dates: start: 201303
  11. SIMVASTATIN [Concomitant]
     Indication: PRODUCT USED FOR UNKNOWN INDICATION
     Dosage: 20 MG, UNK
  12. PARACETAMOL [Concomitant]
     Indication: PRODUCT USED FOR UNKNOWN INDICATION
  13. RANITIDINE [Concomitant]
     Indication: PRODUCT USED FOR UNKNOWN INDICATION
     Dosage: UNK
     Dates: start: 201208
  14. DOMPERIDONE [Concomitant]
     Indication: PRODUCT USED FOR UNKNOWN INDICATION
     Dosage: UNK
     Dates: start: 201210
  15. METOCLOPRAMIDE [Concomitant]
     Indication: PRODUCT USED FOR UNKNOWN INDICATION
     Dosage: UNK
     Dates: start: 201112

REACTIONS (11)
  - Dyspnoea [Recovered/Resolved]
  - Eructation [Recovered/Resolved]
  - Hyperchlorhydria [Recovered/Resolved]
  - Weight decreased [Recovered/Resolved]
  - Abasia [Recovered/Resolved]
  - Gastritis [Recovered/Resolved]
  - Hypoaesthesia [Recovered/Resolved]
  - Loss of control of legs [Recovered/Resolved]
  - Insomnia [Recovered/Resolved]
  - Musculoskeletal stiffness [Recovered/Resolved]
  - Diabetes mellitus inadequate control [Recovered/Resolved]
